FAERS Safety Report 6052051-1 (Version None)
Quarter: 2009Q1

REPORT INFORMATION
  Report Type: 
  Country: None (occurrence: None)
  Receive Date: 20090121
  Receipt Date: 20080313
  Transmission Date: 20090719
  Serious: Yes (Other)
  Sender: FDA-Public Use
  Company Number: HQWYE211917JUL04

PATIENT
  Age: 68 Year
  Sex: Female
  Weight: 96.25 kg

DRUGS (8)
  1. PREMPRO [Suspect]
     Indication: HORMONE REPLACEMENT THERAPY
     Dosage: ORAL
     Route: 048
     Dates: start: 19950101, end: 20000101
  2. PREMARIN [Suspect]
     Dosage: ORAL; APPROXIMATELY 2-3 YEARS
     Route: 048
     Dates: start: 19910101, end: 19940101
  3. PREMARIN [Suspect]
     Dosage: ORAL; APPROXIMATELY 2-3 YEARS
     Route: 048
     Dates: start: 19600101
  4. ... [Concomitant]
  5. ... [Concomitant]
  6. PROVERA [Suspect]
     Dosage: ORAL APPROXIMATELY 2 - 3 YEARS
     Route: 048
     Dates: start: 19910101, end: 19940101
  7. ... [Concomitant]
  8. CARDIZEM [Concomitant]

REACTIONS (1)
  - BREAST CANCER [None]
